FAERS Safety Report 6846961-2 (Version None)
Quarter: 2010Q3

REPORT INFORMATION
  Report Type: 
  Country: None (occurrence: None)
  Receive Date: 20100713
  Receipt Date: 20100628
  Transmission Date: 20110219
  Serious: Yes (Hospitalization, Other)
  Sender: FDA-Public Use
  Company Number: 2010002642

PATIENT
  Age: 48 Year
  Sex: Female

DRUGS (8)
  1. TARCEVA [Suspect]
     Indication: LUNG CANCER METASTATIC
     Dosage: (150 MG, QD), ORAL
     Route: 048
     Dates: start: 20100101, end: 20100401
  2. CARBOXYMETHYLCELLULOSE SODIUM (CARMELLOSE SODIUM) [Concomitant]
  3. WARFARIN SODIUM [Concomitant]
  4. SPIRONOLACTONE [Concomitant]
  5. DEXAMETHASONE [Concomitant]
  6. CARBAMAZEPINE [Concomitant]
  7. PHENOBARBITAL TAB [Concomitant]
  8. PRAVASTATIN [Concomitant]

REACTIONS (4)
  - BALANCE DISORDER [None]
  - COORDINATION ABNORMAL [None]
  - INTRACRANIAL PRESSURE INCREASED [None]
  - MALIGNANT NEOPLASM PROGRESSION [None]
